FAERS Safety Report 4873055-8 (Version None)
Quarter: 2006Q1

REPORT INFORMATION
  Report Type: 
  Country: None (occurrence: None)
  Receive Date: 20060105
  Receipt Date: 20050901
  Transmission Date: 20060701
  Serious: Yes (Other)
  Sender: FDA-Public Use
  Company Number: CA-AMGEN-US149020

PATIENT
  Sex: Female

DRUGS (3)
  1. ENBREL [Suspect]
     Indication: RHEUMATOID ARTHRITIS
     Route: 058
     Dates: start: 20040823, end: 20051007
  2. RELAFEN [Concomitant]
  3. TYLENOL [Concomitant]

REACTIONS (5)
  - DYSPHAGIA [None]
  - HERPES SIMPLEX [None]
  - OESOPHAGEAL OBSTRUCTION [None]
  - PRURITUS [None]
  - SKIN LESION [None]
